FAERS Safety Report 10447354 (Version 1)
Quarter: 2014Q3

REPORT INFORMATION
  Report Type: Spontaneous
  Country: US (occurrence: US)
  Receive Date: 20140911
  Receipt Date: 20140911
  Transmission Date: 20150326
  Serious: Yes (Other)
  Sender: FDA-Public Use
  Company Number: US-GLAXOSMITHKLINE-B0982180A

PATIENT
  Sex: Female

DRUGS (3)
  1. HEPSERA [Suspect]
     Active Substance: ADEFOVIR DIPIVOXIL
     Indication: CHRONIC HEPATITIS B
     Route: 065
  2. EPIVIR [Suspect]
     Active Substance: LAMIVUDINE
     Indication: CHRONIC HEPATITIS B
  3. FAMCICLOVIR. [Suspect]
     Active Substance: FAMCICLOVIR
     Indication: CHRONIC HEPATITIS B

REACTIONS (1)
  - No therapeutic response [Unknown]
